FAERS Safety Report 18551271 (Version 3)
Quarter: 2021Q2

REPORT INFORMATION
  Report Type: Spontaneous
  Country: None (occurrence: JP)
  Receive Date: 20201126
  Receipt Date: 20210421
  Transmission Date: 20210717
  Serious: Yes (Hospitalization, Other)
  Sender: FDA-Public Use
  Company Number: JP-SA-2020SA335684

PATIENT
  Age: 70 Year
  Sex: Female

DRUGS (6)
  1. ELPLAT [Suspect]
     Active Substance: OXALIPLATIN
     Indication: COLORECTAL CANCER RECURRENT
     Dosage: UNK, QOW, ONCE IN 2 WEEKS
     Route: 041
  2. FLUOROURACIL. [Suspect]
     Active Substance: FLUOROURACIL
     Indication: COLORECTAL CANCER RECURRENT
     Dosage: UNK, QOW, ONCE IN 2 WEEKS
     Route: 040
  3. CALCIUM LEVOFOLINATE [Suspect]
     Active Substance: LEVOLEUCOVORIN CALCIUM
     Indication: COLORECTAL CANCER RECURRENT
     Dosage: UNK, QOW, ONCE IN 2 WEEKS
     Route: 041
  4. CAPECITABINE. [Suspect]
     Active Substance: CAPECITABINE
     Indication: COLORECTAL CANCER RECURRENT
     Dosage: UNK
     Route: 048
  5. FLUOROURACIL. [Suspect]
     Active Substance: FLUOROURACIL
     Dosage: ONCE IN 2WEEKS
     Route: 041
  6. ELPLAT [Suspect]
     Active Substance: OXALIPLATIN
     Dosage: ONCE IN 3 WEEKS
     Route: 041

REACTIONS (4)
  - Dihydropyrimidine dehydrogenase deficiency [Unknown]
  - Hyperammonaemia [Unknown]
  - Altered state of consciousness [Recovering/Resolving]
  - Diarrhoea [Recovered/Resolved]
